FAERS Safety Report 24443890 (Version 2)
Quarter: 2024Q4

REPORT INFORMATION
  Report Type: Spontaneous
  Country: FR (occurrence: FR)
  Receive Date: 20241016
  Receipt Date: 20241104
  Transmission Date: 20250115
  Serious: Yes (Hospitalization, Other)
  Sender: AMERICAN REGENT
  Company Number: FR-AMERICAN REGENT INC-2024003836

PATIENT
  Age: 0 Year
  Weight: 2.835 kg

DRUGS (1)
  1. FERINJECT [Suspect]
     Active Substance: FERRIC CARBOXYMALTOSE
     Indication: Product used for unknown indication
     Dosage: 1000 MG,1 IN 1 D
     Route: 064
     Dates: start: 20240326, end: 20240326

REACTIONS (3)
  - Premature baby [Unknown]
  - Bradycardia foetal [Recovered/Resolved]
  - Foetal exposure during pregnancy [Unknown]

NARRATIVE: CASE EVENT DATE: 20240326
